FAERS Safety Report 8104582-8 (Version None)
Quarter: 2012Q1

REPORT INFORMATION
  Report Type: 
  Country: None (occurrence: None)
  Receive Date: 20120201
  Receipt Date: 20120126
  Transmission Date: 20120608
  Serious: Yes (Death)
  Sender: FDA-Public Use
  Company Number: US-ELI_LILLY_AND_COMPANY-US201201003523

PATIENT
  Sex: Male
  Weight: 68 kg

DRUGS (4)
  1. THERAPEUTIC RADIOPHARMACEUTICALS [Concomitant]
  2. GEMZAR [Suspect]
     Dosage: 700 MG, UNK
     Route: 042
     Dates: start: 20101229, end: 20110120
  3. GEMZAR [Suspect]
     Indication: NON-SMALL CELL LUNG CANCER
     Dosage: 1800 MG, UNK
     Route: 042
     Dates: start: 20101201, end: 20101208
  4. TARCEVA [Concomitant]

REACTIONS (1)
  - NEOPLASM PROGRESSION [None]
